FAERS Safety Report 24363092 (Version 4)
Quarter: 2024Q4

REPORT INFORMATION
  Report Type: Spontaneous
  Country: US (occurrence: US)
  Receive Date: 20240925
  Receipt Date: 20241112
  Transmission Date: 20250115
  Serious: No
  Sender: SUNOVION
  Company Number: US-SMPA-2024SPA002504AA

PATIENT

DRUGS (2)
  1. ORGOVYX [Suspect]
     Active Substance: RELUGOLIX
     Indication: Prostate cancer
     Dosage: 360 MG, SINGLE
     Route: 048
     Dates: start: 20240907, end: 20240907
  2. ORGOVYX [Suspect]
     Active Substance: RELUGOLIX
     Dosage: 120 MG, QD
     Route: 048
     Dates: start: 20240908

REACTIONS (17)
  - Feeling cold [Unknown]
  - Peripheral coldness [Unknown]
  - Tension headache [Unknown]
  - Decreased appetite [Unknown]
  - Dehydration [Unknown]
  - Heart rate irregular [Unknown]
  - Sinusitis [Unknown]
  - Muscle spasms [Unknown]
  - Cough [Unknown]
  - Chest discomfort [Unknown]
  - Nausea [Unknown]
  - Diarrhoea [Unknown]
  - Rash [Unknown]
  - Hot flush [Unknown]
  - Dizziness [Unknown]
  - Product temperature excursion issue [Unknown]
  - Inappropriate schedule of product administration [Unknown]
